APPROVED DRUG PRODUCT: PHENTERMINE HYDROCHLORIDE
Active Ingredient: PHENTERMINE HYDROCHLORIDE
Strength: 37.5MG
Dosage Form/Route: TABLET;ORAL
Application: A040276 | Product #001
Applicant: ACTAVIS ELIZABETH LLC
Approved: Nov 25, 1998 | RLD: No | RS: No | Type: DISCN